FAERS Safety Report 7558125-8 (Version None)
Quarter: 2011Q2

REPORT INFORMATION
  Report Type: 
  Country: None (occurrence: None)
  Receive Date: 20110620
  Receipt Date: 20110615
  Transmission Date: 20111010
  Serious: Yes (Death, Other)
  Sender: FDA-Public Use
  Company Number: US-GENZYME-MOZO-1000535

PATIENT
  Age: 67 Year
  Sex: Male

DRUGS (3)
  1. MOZOBIL [Suspect]
     Indication: HAEMATOPOIETIC STEM CELL MOBILISATION
     Route: 065
  2. CLOFARABINE [Suspect]
     Indication: ACUTE MYELOID LEUKAEMIA
     Route: 065
  3. MOZOBIL [Suspect]
     Indication: ACUTE MYELOID LEUKAEMIA

REACTIONS (3)
  - DEATH [None]
  - LUNG INFECTION PSEUDOMONAL [None]
  - ASPERGILLOSIS [None]
